FAERS Safety Report 21144288 (Version 3)
Quarter: 2022Q4

REPORT INFORMATION
  Report Type: Spontaneous
  Country: JP (occurrence: JP)
  Receive Date: 20220728
  Receipt Date: 20221210
  Transmission Date: 20230113
  Serious: Yes (Hospitalization, Other)
  Sender: FDA-Public Use
  Company Number: JP-ONO-2022JP021004

PATIENT
  Age: 55 Year
  Sex: Male
  Weight: 51.5 kg

DRUGS (5)
  1. OPDIVO [Suspect]
     Active Substance: NIVOLUMAB
     Indication: Gastric cancer
     Dosage: 360 MG, Q3W
     Route: 041
     Dates: start: 20220620
  2. TS-1 [Suspect]
     Active Substance: GIMERACIL\OTERACIL\TEGAFUR
     Indication: Gastric cancer
     Dosage: 60 MG, Q12H
     Route: 048
     Dates: start: 20220621
  3. OXALIPLATIN [Suspect]
     Active Substance: OXALIPLATIN
     Indication: Gastric cancer
     Dosage: 200 MG, Q3W
     Route: 041
     Dates: start: 20220620
  4. DEXAMETHASONE SODIUM PHOSPHATE [Concomitant]
     Active Substance: DEXAMETHASONE SODIUM PHOSPHATE
     Indication: Prophylaxis
     Dosage: 6.6 MG, Q3W
     Route: 041
     Dates: start: 20220620
  5. ALOXI [Concomitant]
     Active Substance: PALONOSETRON HYDROCHLORIDE
     Indication: Prophylaxis
     Dosage: 0.75 MG, Q3W
     Route: 041
     Dates: start: 20220620

REACTIONS (1)
  - Fulminant type 1 diabetes mellitus [Not Recovered/Not Resolved]

NARRATIVE: CASE EVENT DATE: 20220714
